FAERS Safety Report 8494530-3 (Version None)
Quarter: 2012Q3

REPORT INFORMATION
  Report Type: 
  Country: None (occurrence: None)
  Receive Date: 20120709
  Receipt Date: 20120627
  Transmission Date: 20120928
  Serious: Yes (Other)
  Sender: FDA-Public Use
  Company Number: CA-JNJFOC-20120614701

PATIENT
  Sex: Female
  Weight: 55 kg

DRUGS (2)
  1. REMICADE [Suspect]
     Route: 042
     Dates: start: 20111110
  2. REMICADE [Suspect]
     Indication: CROHN'S DISEASE
     Route: 042
     Dates: start: 20120627

REACTIONS (6)
  - DYSPNOEA [None]
  - JOINT SWELLING [None]
  - INFUSION RELATED REACTION [None]
  - WEIGHT DECREASED [None]
  - FLUSHING [None]
  - CHEST DISCOMFORT [None]
